FAERS Safety Report 9350536 (Version 3)
Quarter: 2013Q3

REPORT INFORMATION
  Report Type: Spontaneous
  Country: US (occurrence: US)
  Receive Date: 20130617
  Receipt Date: 20130802
  Transmission Date: 20140515
  Serious: Yes (Hospitalization, Other)
  Sender: FDA-Public Use
  Company Number: US-B.I. PHARMACEUTICALS,INC./RIDGEFIELD-2013-BI-16884BP

PATIENT
  Age: 86 Year
  Sex: Female
  Weight: 72 kg

DRUGS (6)
  1. SPIRIVA [Suspect]
     Indication: EMPHYSEMA
     Dosage: 18 MCG
     Route: 055
     Dates: start: 2009
  2. SPIRIVA [Suspect]
     Indication: CHRONIC OBSTRUCTIVE PULMONARY DISEASE
  3. SYMBICORT [Concomitant]
     Indication: CHRONIC OBSTRUCTIVE PULMONARY DISEASE
     Dosage: STRENGTH: 160MCG/4.5MCG; DAILY DOSE: 640MCG/18MCG
     Route: 055
     Dates: start: 2009
  4. OMEPRAZOLE [Concomitant]
     Indication: GASTROOESOPHAGEAL REFLUX DISEASE
     Dosage: DOSE: 2Q
     Dates: start: 2010
  5. CELEBREX [Concomitant]
     Indication: OSTEOARTHRITIS
     Dosage: DOSE: 200 QD
     Dates: start: 2009
  6. ASTELIN NASAL SPRAY [Concomitant]
     Indication: RHINITIS
     Dosage: DOSE: 2 SPRAY EACH NOSTRIL
     Dates: start: 2012

REACTIONS (7)
  - Bronchitis [Not Recovered/Not Resolved]
  - Musculoskeletal pain [Not Recovered/Not Resolved]
  - Musculoskeletal pain [Not Recovered/Not Resolved]
  - Dehydration [Recovered/Resolved]
  - Urinary retention [Not Recovered/Not Resolved]
  - Urinary retention postoperative [Recovered/Resolved]
  - Urinary retention postoperative [Recovered/Resolved]
